FAERS Safety Report 12600202 (Version 2)
Quarter: 2016Q4

REPORT INFORMATION
  Report Type: Spontaneous
  Country: JP (occurrence: JP)
  Receive Date: 20160727
  Receipt Date: 20161018
  Transmission Date: 20170207
  Serious: Yes (Life-Threatening, Hospitalization, Other)
  Sender: FDA-Public Use
  Company Number: JP-BRISTOL-MYERS SQUIBB COMPANY-BMS-2016-051078

PATIENT
  Age: 57 Year
  Sex: Female

DRUGS (8)
  1. ZACRAS [Suspect]
     Active Substance: AMLODIPINE BESYLATE\AZILSARTAN
     Indication: HYPERTENSION
     Dosage: UNK
     Route: 048
     Dates: start: 20150714
  2. AMARYL [Suspect]
     Active Substance: GLIMEPIRIDE
     Dosage: 0.5 MG, UNK
     Route: 048
     Dates: end: 20150814
  3. GLACTIV [Suspect]
     Active Substance: SITAGLIPTIN
     Indication: DIABETES MELLITUS
     Dosage: 50 MG, UNK
     Route: 048
     Dates: end: 20150814
  4. METGLUCO [Suspect]
     Active Substance: METFORMIN HYDROCHLORIDE
     Dosage: 500 MG, UNK
     Route: 048
  5. CRESTOR [Concomitant]
     Active Substance: ROSUVASTATIN CALCIUM
     Indication: DYSLIPIDAEMIA
     Dosage: 500 MG, UNK
     Route: 048
  6. METGLUCO [Suspect]
     Active Substance: METFORMIN HYDROCHLORIDE
     Indication: DIABETES MELLITUS
     Dosage: 750 MG, TID
     Route: 048
  7. AMARYL [Suspect]
     Active Substance: GLIMEPIRIDE
     Indication: DIABETES MELLITUS
     Dosage: 1 MG, UNK
     Route: 048
     Dates: end: 20150814
  8. ACTOS [Suspect]
     Active Substance: PIOGLITAZONE HYDROCHLORIDE
     Indication: DIABETES MELLITUS
     Dosage: 15 MG, UNK
     Route: 048

REACTIONS (5)
  - Hypoglycaemia [Recovering/Resolving]
  - Lactic acidosis [Recovered/Resolved]
  - Treatment noncompliance [Unknown]
  - Continuous haemodiafiltration [Unknown]
  - Dialysis [Unknown]

NARRATIVE: CASE EVENT DATE: 20150814
